FAERS Safety Report 25321504 (Version 1)
Quarter: 2025Q2

REPORT INFORMATION
  Report Type: Report from Study
  Country: US (occurrence: US)
  Receive Date: 20250516
  Receipt Date: 20250516
  Transmission Date: 20250716
  Serious: Yes (Hospitalization, Other)
  Sender: BOEHRINGER INGELHEIM
  Company Number: US-BoehringerIngelheim-2025-BI-026752

PATIENT
  Age: 69 Year
  Sex: Female

DRUGS (8)
  1. OFEV [Suspect]
     Active Substance: NINTEDANIB
     Indication: Product used for unknown indication
  2. TYVASO DPI [Suspect]
     Active Substance: TREPROSTINIL
     Indication: Pulmonary arterial hypertension
     Dates: start: 20241226, end: 202501
  3. TYVASO DPI [Suspect]
     Active Substance: TREPROSTINIL
     Dates: start: 202501, end: 202501
  4. TYVASO DPI [Suspect]
     Active Substance: TREPROSTINIL
     Dates: end: 20250207
  5. TYVASO DPI [Suspect]
     Active Substance: TREPROSTINIL
     Dates: start: 20241211, end: 20241226
  6. OPSUMIT [Suspect]
     Active Substance: MACITENTAN
     Indication: Product used for unknown indication
  7. OXYGEN [Concomitant]
     Active Substance: OXYGEN
     Indication: Product used for unknown indication
  8. CELLCEPT [Concomitant]
     Active Substance: MYCOPHENOLATE MOFETIL
     Indication: Product used for unknown indication

REACTIONS (11)
  - Oxygen saturation decreased [Not Recovered/Not Resolved]
  - Pulmonary hypertension [Not Recovered/Not Resolved]
  - Right ventricular failure [Not Recovered/Not Resolved]
  - Dyspnoea exertional [Not Recovered/Not Resolved]
  - Peripheral swelling [Not Recovered/Not Resolved]
  - Cough [Unknown]
  - Diarrhoea [Recovering/Resolving]
  - Abdominal discomfort [Recovering/Resolving]
  - Dyspnoea [Not Recovered/Not Resolved]
  - Lethargy [Not Recovered/Not Resolved]
  - Fluid retention [Not Recovered/Not Resolved]

NARRATIVE: CASE EVENT DATE: 20241201
